FAERS Safety Report 4954949-1 (Version None)
Quarter: 2006Q1

REPORT INFORMATION
  Report Type: 
  Country: None (occurrence: None)
  Receive Date: 20060322
  Receipt Date: 20060309
  Transmission Date: 20060701
  Serious: Yes (Other)
  Sender: FDA-Public Use
  Company Number: 2006034665

PATIENT
  Age: 40 Year
  Sex: Male
  Weight: 108.8633 kg

DRUGS (28)
  1. DEPO-TESTOSTERONE (TESTOSTERONE CYPIONATE ) [Suspect]
     Indication: BLOOD TESTOSTERONE DECREASED
     Dosage: SEE IMAGE
     Route: 030
     Dates: start: 20051101, end: 20051101
  2. DEPO-TESTOSTERONE (TESTOSTERONE CYPIONATE ) [Suspect]
     Indication: BLOOD TESTOSTERONE DECREASED
     Dosage: SEE IMAGE
     Route: 030
     Dates: start: 20051201, end: 20051201
  3. DEPO-TESTOSTERONE (TESTOSTERONE CYPIONATE ) [Suspect]
     Indication: BLOOD TESTOSTERONE DECREASED
     Dosage: SEE IMAGE
     Route: 030
     Dates: start: 20060101, end: 20060101
  4. DEPO-TESTOSTERONE (TESTOSTERONE CYPIONATE ) [Suspect]
     Indication: BLOOD TESTOSTERONE DECREASED
     Dosage: SEE IMAGE
     Route: 030
     Dates: start: 20060201, end: 20060201
  5. SYNTHROID [Concomitant]
  6. AZULFIDINE [Concomitant]
  7. NAPROSYN [Concomitant]
  8. PREDNISONE TAB [Concomitant]
  9. ATROVENT [Concomitant]
  10. PERCOCET [Concomitant]
  11. ZITHROMAX [Concomitant]
  12. PULMICORT [Concomitant]
  13. AZMACORT [Concomitant]
  14. ZETIA [Concomitant]
  15. XOPENEX [Concomitant]
  16. ALBUTEROL [Concomitant]
  17. FORADIL [Concomitant]
  18. ACIPHEX [Concomitant]
  19. LISINOPRIL [Concomitant]
  20. ZYRTEC [Concomitant]
  21. SINGULAIR ^MERCK^ (MONTELUKAST SODIUM) [Concomitant]
  22. INSULIN (INSULIN) [Concomitant]
  23. NPH INSULIN [Concomitant]
  24. INSULIN (INSULIN) [Concomitant]
  25. MUCINEX (GUAIFENESIN) [Concomitant]
  26. HYDROCODONE BITARTRATE [Concomitant]
  27. NASONEX [Concomitant]
  28. RHINOCORT [Concomitant]

REACTIONS (11)
  - ASTHENIA [None]
  - CHEST DISCOMFORT [None]
  - DRY MOUTH [None]
  - DYSGEUSIA [None]
  - DYSPNOEA [None]
  - FATIGUE [None]
  - HEADACHE [None]
  - NAUSEA [None]
  - TACHYCARDIA [None]
  - THIRST [None]
  - WHEEZING [None]
